FAERS Safety Report 4279297-7 (Version None)
Quarter: 2004Q1

REPORT INFORMATION
  Report Type: 
  Country: None (occurrence: None)
  Receive Date: 20040126
  Receipt Date: 20040126
  Transmission Date: 20041129
  Serious: No
  Sender: FDA-Public Use
  Company Number: None

PATIENT
  Age: 60 Year
  Sex: Female
  Weight: 49.8957 kg

DRUGS (4)
  1. ADRIAMYCIN (DOXORUBICIN) [Suspect]
     Indication: BREAST CANCER
     Dosage: 85MG IVP
     Route: 042
     Dates: start: 20030916
  2. ADRIAMYCIN (DOXORUBICIN) [Suspect]
     Indication: BREAST CANCER
     Dosage: 85MG IVP
     Route: 042
     Dates: start: 20031007
  3. ADRIAMYCIN (DOXORUBICIN) [Suspect]
     Indication: BREAST CANCER
     Dosage: 85MG IVP
     Route: 042
     Dates: start: 20031210
  4. CYTOXAN [Concomitant]

REACTIONS (1)
  - INFUSION SITE INFLAMMATION [None]
